FAERS Safety Report 5336556-4 (Version None)
Quarter: 2007Q2

REPORT INFORMATION
  Report Type: 
  Country: None (occurrence: None)
  Receive Date: 20070529
  Receipt Date: 20070523
  Transmission Date: 20071010
  Serious: Yes (Hospitalization)
  Sender: FDA-Public Use
  Company Number: DE-PURDUE-DEU_2006_0002684

PATIENT
  Age: 51 Year
  Sex: Male
  Weight: 89 kg

DRUGS (10)
  1. OXY/NALOXONE VS OXY/PLACEBO CR TAB [Suspect]
     Indication: BACK PAIN
     Dosage: 40 MG, DAILY
     Route: 048
     Dates: start: 20061103, end: 20061103
  2. OXY/NALOXONE VS OXY/PLACEBO CR TAB [Suspect]
     Dosage: 50 MG, DAILY
     Route: 048
     Dates: start: 20061104
  3. OXY/NALOXONE VS OXY/PLACEBO CR TAB [Suspect]
     Dosage: 50 MG, DAILY
     Route: 048
     Dates: start: 20061102, end: 20061102
  4. OXY/NALOXONE VS OXY/PLACEBO CR TAB [Suspect]
     Dosage: 30 MG, DAILY
     Route: 048
     Dates: start: 20061101, end: 20061101
  5. OXYCODON KAPSELN 5MG [Suspect]
     Indication: BACK PAIN
     Dosage: UNK, PRN
     Route: 048
     Dates: start: 20061103, end: 20061103
  6. OXYCODON KAPSELN 5MG [Suspect]
     Dosage: UNK, PRN
     Route: 048
     Dates: start: 20061116, end: 20061119
  7. GABAPENTIN [Concomitant]
  8. ACETYLSALICYLIC ACID SRT [Concomitant]
  9. DULCOLAX [Concomitant]
  10. PRAVASTATIN [Concomitant]

REACTIONS (1)
  - LUMBAR RADICULOPATHY [None]
